FAERS Safety Report 23613540 (Version 2)
Quarter: 2024Q1

REPORT INFORMATION
  Report Type: Spontaneous
  Country: US (occurrence: None)
  Receive Date: 20240308
  Receipt Date: 20240312
  Transmission Date: 20240410
  Serious: Yes (Hospitalization)
  Sender: FDA-Public Use
  Company Number: US-ROCHE-3521543

PATIENT
  Sex: Male

DRUGS (9)
  1. ACTEMRA [Suspect]
     Active Substance: TOCILIZUMAB
     Indication: Rheumatoid arthritis
     Dosage: 163MG/09.ML?MOST RECENT LOT DISPENSED - B5034B02 EXP 30SEP25 - DELIVERED TO PATIENT 16/FEB/2024.
     Route: 058
     Dates: start: 20210219
  2. METHYLPREDNISOLONE [Concomitant]
     Active Substance: METHYLPREDNISOLONE
  3. ATORVASTATIN [Concomitant]
     Active Substance: ATORVASTATIN
  4. CLOBETASOL [Concomitant]
     Active Substance: CLOBETASOL
  5. DEXAMETHASONE [Concomitant]
     Active Substance: DEXAMETHASONE
     Dosage: STRENGTH: 4MG/ML
  6. FOLIC ACID [Concomitant]
     Active Substance: FOLIC ACID
  7. INDOMETHACIN [Concomitant]
     Active Substance: INDOMETHACIN
  8. METHOTREXATE [Concomitant]
     Active Substance: METHOTREXATE
  9. METOPROLOL TARTRATE [Concomitant]
     Active Substance: METOPROLOL TARTRATE

REACTIONS (5)
  - Cardiac failure congestive [Recovering/Resolving]
  - COVID-19 pneumonia [Recovering/Resolving]
  - Pain [Unknown]
  - Loss of personal independence in daily activities [Unknown]
  - Rheumatoid arthritis [Unknown]
